FAERS Safety Report 8136042-2 (Version None)
Quarter: 2012Q1

REPORT INFORMATION
  Report Type: 
  Country: None (occurrence: None)
  Receive Date: 20120214
  Receipt Date: 20120209
  Transmission Date: 20120608
  Serious: Yes (Other)
  Sender: FDA-Public Use
  Company Number: US-PFIZER INC-2009238825

PATIENT
  Sex: Female
  Weight: 74.83 kg

DRUGS (8)
  1. TRIAMCINOLONE [Concomitant]
     Dosage: UNK
  2. ESCITALOPRAM [Concomitant]
     Indication: DEPRESSION
     Dosage: 10 MG, UNK
  3. ALPRAZOLAM [Concomitant]
     Indication: ANXIETY
     Dosage: UNK
     Dates: start: 20081201
  4. DILTIAZEM [Concomitant]
     Indication: HYPERTENSION
     Dosage: UNK
     Dates: start: 20070101
  5. CHANTIX [Suspect]
     Indication: SMOKING CESSATION THERAPY
     Dosage: UNK
     Dates: start: 20090422, end: 20090622
  6. HYDROCHLOROTHIAZIDE [Concomitant]
     Indication: HYPERTENSION
     Dosage: UNK
     Dates: start: 20070101
  7. CARDIZEM [Concomitant]
     Indication: HYPERTENSION
     Dosage: 120 MG, UNK
  8. POTASSIUM CHLORIDE [Concomitant]
     Indication: BLOOD POTASSIUM DECREASED
     Dosage: UNK
     Dates: start: 20070101

REACTIONS (6)
  - INSOMNIA [None]
  - ANXIETY [None]
  - MENTAL DISORDER [None]
  - DEPRESSION [None]
  - AGGRESSION [None]
  - NAUSEA [None]
